FAERS Safety Report 5697422-8 (Version None)
Quarter: 2008Q2

REPORT INFORMATION
  Report Type: 
  Country: None (occurrence: None)
  Receive Date: 20080404
  Receipt Date: 20080404
  Transmission Date: 20081010
  Serious: No
  Sender: FDA-Public Use
  Company Number: None

PATIENT
  Sex: Male

DRUGS (2)
  1. AMPHETAMINE AND DEXTROAMPHETAMINE SALTS [Suspect]
     Indication: NARCOLEPSY
     Dosage: 7.5 MG TWICE QD (PO)
     Route: 048
  2. PROVIGIL [Suspect]

REACTIONS (1)
  - NO THERAPEUTIC RESPONSE [None]
